FAERS Safety Report 8505883-1 (Version None)
Quarter: 2012Q3

REPORT INFORMATION
  Report Type: 
  Country: None (occurrence: None)
  Receive Date: 20120712
  Receipt Date: 20120704
  Transmission Date: 20120928
  Serious: Yes (Other)
  Sender: FDA-Public Use
  Company Number: PH-ACTELION-A-CH2012-68170

PATIENT
  Age: 23 Year
  Sex: Female
  Weight: 44 kg

DRUGS (4)
  1. BOSENTAN [Suspect]
     Dosage: 62.5 MG, BID
     Route: 048
     Dates: start: 20120601
  2. BOSENTAN [Suspect]
     Indication: PULMONARY ARTERIAL HYPERTENSION
     Dosage: 125 MG, BID
     Route: 048
  3. LANOXIN [Concomitant]
  4. FUROSEMIDE [Concomitant]

REACTIONS (2)
  - HEADACHE [None]
  - HYPOAESTHESIA [None]
